FAERS Safety Report 5421003-4 (Version None)
Quarter: 2007Q3

REPORT INFORMATION
  Report Type: 
  Country: None (occurrence: None)
  Receive Date: 20070821
  Receipt Date: 20070820
  Transmission Date: 20080115
  Serious: Yes (Hospitalization)
  Sender: FDA-Public Use
  Company Number: A0671681A

PATIENT
  Age: 67 Year
  Sex: Female

DRUGS (8)
  1. ALLI [Suspect]
     Indication: WEIGHT LOSS DIET
     Route: 048
     Dates: start: 20070711, end: 20070725
  2. VERAPAMIL [Concomitant]
  3. LANTUS [Concomitant]
  4. HUMALOG [Concomitant]
  5. LASIX [Concomitant]
  6. METFORMIN HCL [Concomitant]
  7. CO Q 10 [Concomitant]
  8. GARLIQUE [Concomitant]

REACTIONS (9)
  - DEHYDRATION [None]
  - FAECES DISCOLOURED [None]
  - FEAR [None]
  - HAEMATOCHEZIA [None]
  - HAEMORRHAGE [None]
  - HEART RATE INCREASED [None]
  - HYPOVITAMINOSIS [None]
  - MALAISE [None]
  - PHARMACEUTICAL PRODUCT COMPLAINT [None]
